FAERS Safety Report 18011757 (Version 1)
Quarter: 2020Q3

REPORT INFORMATION
  Report Type: Spontaneous
  Country: CA (occurrence: CA)
  Receive Date: 20200713
  Receipt Date: 20200713
  Transmission Date: 20201103
  Serious: Yes (Other)
  Sender: FDA-Public Use
  Company Number: CA-PFIZER INC-2020259600

PATIENT
  Age: 78 Year
  Sex: Female
  Weight: 75 kg

DRUGS (5)
  1. CRESTOR [Concomitant]
     Active Substance: ROSUVASTATIN CALCIUM
  2. TECHNETIUM (99MTC) PERTECHNETATE [Suspect]
     Active Substance: TECHNETIUM TC-99M PERTECHNETATE
     Dosage: 925 MBQ
     Route: 042
  3. AMINOPHYLLINE. [Suspect]
     Active Substance: AMINOPHYLLINE
     Indication: DIAGNOSTIC PROCEDURE
     Dosage: 75 MG, SINGLE
     Route: 042
  4. PERSANTINE [Suspect]
     Active Substance: DIPYRIDAMOLE
     Indication: DIAGNOSTIC PROCEDURE
     Dosage: 30 MG, SINGLE
     Route: 042
  5. ASA [Concomitant]
     Active Substance: ASPIRIN

REACTIONS (2)
  - Acne [Recovered/Resolved]
  - Pruritus [Recovered/Resolved]
